FAERS Safety Report 7360284-7 (Version None)
Quarter: 2011Q1

REPORT INFORMATION
  Report Type: 
  Country: None (occurrence: None)
  Receive Date: 20110318
  Receipt Date: 20110308
  Transmission Date: 20110831
  Serious: Yes (Death, Other)
  Sender: FDA-Public Use
  Company Number: US-CELGENEUS-163-20785-11030943

PATIENT
  Sex: Male
  Weight: 76.7 kg

DRUGS (1)
  1. THALOMID [Suspect]
     Dosage: 100 MILLIGRAM
     Route: 048
     Dates: start: 20100525

REACTIONS (2)
  - LARGE INTESTINE PERFORATION [None]
  - DEATH [None]
